FAERS Safety Report 9802535 (Version 2)
Quarter: 2014Q1

REPORT INFORMATION
  Report Type: Report from Study
  Country: US (occurrence: US)
  Receive Date: 20140108
  Receipt Date: 20140113
  Transmission Date: 20141002
  Serious: Yes (Hospitalization)
  Sender: FDA-Public Use
  Company Number: US-ROCHE-1329939

PATIENT
  Sex: Female
  Weight: 107 kg

DRUGS (5)
  1. XOLAIR [Suspect]
     Indication: ASTHMA
     Route: 065
  2. XOLAIR [Suspect]
     Route: 058
  3. PREDNISONE [Concomitant]
     Dosage: ONCE A DAY FOR 5 DAYS
     Route: 065
  4. ACCOLATE [Concomitant]
  5. THEOPHYLLINE [Concomitant]

REACTIONS (6)
  - Asthma [Unknown]
  - Upper respiratory tract infection [Unknown]
  - Cough [Unknown]
  - Dyspnoea [Unknown]
  - Nasal polyps [Unknown]
  - Wheezing [Unknown]
